FAERS Safety Report 25208639 (Version 1)
Quarter: 2025Q2

REPORT INFORMATION
  Report Type: Spontaneous
  Country: BR (occurrence: BR)
  Receive Date: 20250417
  Receipt Date: 20250417
  Transmission Date: 20250717
  Serious: Yes (Hospitalization)
  Sender: BOEHRINGER INGELHEIM
  Company Number: BR-Komodo Health-a23aa000006qjs1AAA

PATIENT
  Age: 79 Year
  Sex: Male

DRUGS (3)
  1. OLODATEROL HYDROCHLORIDE\TIOTROPIUM BROMIDE MONOHYDRATE [Suspect]
     Active Substance: OLODATEROL HYDROCHLORIDE\TIOTROPIUM BROMIDE MONOHYDRATE
     Indication: Chronic obstructive pulmonary disease
     Dosage: TWICE A DAY, BEING 2 PUFFS IN THE MORNING AND 2 PUFFS AT NIGHT.
  2. LOSARTAN [Concomitant]
     Active Substance: LOSARTAN
     Indication: Hypertension
  3. DAPAGLIFLOZIN [Concomitant]
     Active Substance: DAPAGLIFLOZIN
     Indication: Diabetes mellitus
     Dosage: ONCE A DAY.

REACTIONS (10)
  - Dyspnoea [Unknown]
  - Multiple use of single-use product [Not Recovered/Not Resolved]
  - Medication error [Not Recovered/Not Resolved]
  - Overdose [Not Recovered/Not Resolved]
  - Respiratory disorder [Unknown]
  - Lung disorder [Unknown]
  - Discomfort [Unknown]
  - Fatigue [Unknown]
  - Condition aggravated [Unknown]
  - Viral infection [Unknown]

NARRATIVE: CASE EVENT DATE: 20250101
